FAERS Safety Report 8769655 (Version 2)
Quarter: 2012Q4

REPORT INFORMATION
  Report Type: 
  Country: JP (occurrence: JP)
  Receive Date: 20120904
  Receipt Date: 20120910
  Transmission Date: 20130627
  Serious: Yes (Other)
  Sender: FDA-Public Use
  Company Number: JP-PFIZER INC-2012216595

PATIENT
  Age: 72 Year
  Sex: Male

DRUGS (1)
  1. CHAMPIX [Suspect]
     Dosage: 2 mg daily
     Route: 048
     Dates: start: 20120610, end: 201207

REACTIONS (1)
  - Metastatic lymphoma [Unknown]
